FAERS Safety Report 4294315-8 (Version None)
Quarter: 2004Q1

REPORT INFORMATION
  Report Type: 
  Country: None (occurrence: None)
  Receive Date: 20040212
  Receipt Date: 20040212
  Transmission Date: 20041129
  Serious: No
  Sender: FDA-Public Use
  Company Number: None

PATIENT
  Age: 61 Year
  Sex: Male

DRUGS (1)
  1. METAMUCIL-2 [Suspect]
     Indication: CONSTIPATION
     Dosage: DAILY

REACTIONS (2)
  - DYSPHAGIA [None]
  - MEDICATION ERROR [None]
